FAERS Safety Report 8344729-1 (Version None)
Quarter: 2012Q2

REPORT INFORMATION
  Report Type: 
  Country: None (occurrence: None)
  Receive Date: 20120508
  Receipt Date: 20120501
  Transmission Date: 20120825
  Serious: No
  Sender: FDA-Public Use
  Company Number: US-PFIZER INC-2012092067

PATIENT
  Sex: Male
  Weight: 78.912 kg

DRUGS (6)
  1. ASPIRIN [Concomitant]
     Dosage: UNK, 1X/DAY
  2. SYNTHROID [Concomitant]
     Dosage: UNK
  3. FLOMAX [Concomitant]
     Dosage: UNK
  4. XALATAN [Suspect]
     Indication: GLAUCOMA
     Dosage: 1 DROP AT BEDTIME IN BOTH EYES
     Route: 047
     Dates: start: 20120327
  5. PEPCID [Concomitant]
     Dosage: 20MG
  6. XALATAN [Suspect]
     Dosage: 1 GTT, UNK (AT BEDTIME IN BOTH EYES)
     Route: 047
     Dates: start: 20120327

REACTIONS (3)
  - INFLUENZA [None]
  - PHARYNGEAL ERYTHEMA [None]
  - PYREXIA [None]
